FAERS Safety Report 7039577-9 (Version None)
Quarter: 2010Q4

REPORT INFORMATION
  Report Type: 
  Country: None (occurrence: None)
  Receive Date: 20101012
  Receipt Date: 20101006
  Transmission Date: 20110411
  Serious: Yes (Hospitalization)
  Sender: FDA-Public Use
  Company Number: A0787083A

PATIENT
  Sex: Male

DRUGS (2)
  1. AVANDIA [Suspect]
     Dosage: 4MG PER DAY
     Route: 048
     Dates: start: 19990701, end: 20060101
  2. AVANDAMET [Suspect]
     Route: 048
     Dates: start: 20060101, end: 20081001

REACTIONS (4)
  - CARDIAC FAILURE CONGESTIVE [None]
  - CARDIAC PACEMAKER INSERTION [None]
  - GAIT DISTURBANCE [None]
  - MYOCARDIAL INFARCTION [None]
